FAERS Safety Report 4385834-4 (Version None)
Quarter: 2004Q2

REPORT INFORMATION
  Report Type: 
  Country: None (occurrence: None)
  Receive Date: 20040628
  Receipt Date: 20040621
  Transmission Date: 20050107
  Serious: Yes (Other)
  Sender: FDA-Public Use
  Company Number: PHBS2004SE08266

PATIENT
  Age: 82 Year
  Sex: Male

DRUGS (6)
  1. EXELON [Suspect]
     Indication: DEMENTIA
     Dosage: 3 MG/D
     Route: 065
     Dates: start: 20040618
  2. CLOZAPINE [Suspect]
     Dosage: 50 MG/D
     Route: 065
     Dates: start: 20040618
  3. MADOPARK [Concomitant]
     Dosage: 400 MG/D
  4. TROMBYL [Concomitant]
     Dosage: 75 MG/D
  5. EBIXA [Concomitant]
     Dosage: 20 MG/D
  6. ARICEPT [Concomitant]

REACTIONS (5)
  - CIRCULATORY COLLAPSE [None]
  - HEART RATE DECREASED [None]
  - MEDICATION ERROR [None]
  - PYREXIA [None]
  - SPEECH DISORDER [None]
